FAERS Safety Report 6209499-1 (Version None)
Quarter: 2009Q2

REPORT INFORMATION
  Report Type: 
  Country: None (occurrence: None)
  Receive Date: 20090601
  Receipt Date: 20090521
  Transmission Date: 20091009
  Serious: Yes (Other)
  Sender: FDA-Public Use
  Company Number: PHHY2009CN19458

PATIENT
  Sex: Female

DRUGS (1)
  1. GLEEVEC [Suspect]
     Indication: GASTROINTESTINAL STROMAL TUMOUR
     Dosage: 400 MG, QD
     Route: 048
     Dates: start: 20090218, end: 20090421

REACTIONS (4)
  - ANAEMIA [None]
  - MENORRHAGIA [None]
  - OLIGOMENORRHOEA [None]
  - WHITE BLOOD CELL COUNT DECREASED [None]
